FAERS Safety Report 6652521-9 (Version None)
Quarter: 2010Q1

REPORT INFORMATION
  Report Type: 
  Country: None (occurrence: None)
  Receive Date: 20100325
  Receipt Date: 20100325
  Transmission Date: 20100710
  Serious: No
  Sender: FDA-Public Use
  Company Number: None

PATIENT
  Age: 66 Year
  Sex: Male
  Weight: 79 kg

DRUGS (1)
  1. FLUOROURACIL [Suspect]
     Indication: COLON CANCER STAGE IV
     Dosage: 4900 MG OTHER IV
     Route: 042
     Dates: start: 20100223, end: 20100323

REACTIONS (1)
  - ANGINA PECTORIS [None]
